FAERS Safety Report 11278949 (Version 1)
Quarter: 2015Q3

REPORT INFORMATION
  Report Type: Spontaneous
  Country: US (occurrence: US)
  Receive Date: 20150717
  Receipt Date: 20150717
  Transmission Date: 20151125
  Serious: Yes (Other)
  Sender: FDA-Public Use
  Company Number: US-AMGEN-USASP2015070411

PATIENT
  Age: 81 Year
  Sex: Female

DRUGS (3)
  1. PROLIA [Suspect]
     Active Substance: DENOSUMAB
     Indication: PRODUCT USED FOR UNKNOWN INDICATION
     Route: 065
     Dates: start: 20150105
  2. VITAMIN D                          /00107901/ [Concomitant]
     Active Substance: ERGOCALCIFEROL
  3. CALCIUM [Concomitant]
     Active Substance: CALCIUM

REACTIONS (10)
  - Barrett^s oesophagus [Unknown]
  - Anorectal discomfort [Unknown]
  - Chromaturia [Unknown]
  - Abnormal faeces [Unknown]
  - Faeces hard [Recovering/Resolving]
  - Dysphonia [Unknown]
  - Flatulence [Unknown]
  - Urine odour abnormal [Unknown]
  - Musculoskeletal pain [Unknown]
  - Faeces discoloured [Unknown]
